FAERS Safety Report 5975265-5 (Version None)
Quarter: 2008Q4

REPORT INFORMATION
  Report Type: 
  Country: None (occurrence: None)
  Receive Date: 20081202
  Receipt Date: 20080530
  Transmission Date: 20090506
  Serious: No
  Sender: FDA-Public Use
  Company Number: US-BAYER-200812339BCC

PATIENT
  Age: 85 Year
  Sex: Female
  Weight: 64 kg

DRUGS (11)
  1. ALEVE [Suspect]
     Indication: BACK PAIN
     Dosage: UNIT DOSE: 220 MG
     Route: 048
     Dates: start: 20080401, end: 20080501
  2. ALEVE [Suspect]
     Dosage: UNIT DOSE: 220 MG
     Route: 048
     Dates: start: 20080528, end: 20080528
  3. ALEVE [Suspect]
     Dosage: TOTAL DAILY DOSE: 660 MG  UNIT DOSE: 220 MG
     Route: 048
     Dates: start: 20080529, end: 20080529
  4. ALEVE [Suspect]
     Dosage: TOTAL DAILY DOSE: 220 MG  UNIT DOSE: 220 MG
     Route: 048
     Dates: start: 20080530
  5. BENICAR [Concomitant]
  6. COUMADIN [Concomitant]
  7. SYNTHROID [Concomitant]
  8. KLONOPIN [Concomitant]
  9. LOVASTATIN [Concomitant]
  10. FOSAMAX [Concomitant]
  11. ASPIRIN 81 MG (CVS OR BAYER BRAND) [Concomitant]
     Indication: PROPHYLAXIS
     Route: 048

REACTIONS (1)
  - ABDOMINAL DISCOMFORT [None]
